FAERS Safety Report 24330646 (Version 2)
Quarter: 2025Q1

REPORT INFORMATION
  Report Type: Spontaneous
  Country: DE (occurrence: DE)
  Receive Date: 20240918
  Receipt Date: 20250123
  Transmission Date: 20250409
  Serious: Yes (Other)
  Sender: ALKEM
  Company Number: DE-ALKEM LABORATORIES LIMITED-DE-ALKEM-2024-19094

PATIENT
  Age: 29 Year
  Sex: Female

DRUGS (12)
  1. MORPHINE SULFATE [Suspect]
     Active Substance: MORPHINE SULFATE
     Indication: Drug abuse
     Route: 065
  2. PREGABALIN [Suspect]
     Active Substance: PREGABALIN
     Indication: Drug abuse
     Route: 065
  3. TEMAZEPAM [Suspect]
     Active Substance: TEMAZEPAM
     Indication: Drug abuse
     Route: 065
  4. PROMETHAZINE [Suspect]
     Active Substance: PROMETHAZINE HYDROCHLORIDE
     Indication: Drug abuse
     Route: 065
  5. BROMAZEPAM [Suspect]
     Active Substance: BROMAZEPAM
     Indication: Drug abuse
     Route: 065
  6. DIAZEPAM [Suspect]
     Active Substance: DIAZEPAM
     Indication: Drug abuse
     Route: 065
  7. LEVOMETHADONE [Suspect]
     Active Substance: LEVOMETHADONE
     Indication: Drug abuse
     Route: 065
  8. LORAZEPAM [Suspect]
     Active Substance: LORAZEPAM
     Indication: Drug abuse
     Route: 065
  9. NORDAZEPAM [Suspect]
     Active Substance: NORDAZEPAM
     Indication: Drug abuse
     Route: 065
  10. OXAZEPAM [Suspect]
     Active Substance: OXAZEPAM
     Indication: Drug abuse
     Route: 065
  11. DRONABINOL [Suspect]
     Active Substance: DRONABINOL
     Indication: Drug abuse
     Route: 065
  12. TRAMADOL [Suspect]
     Active Substance: TRAMADOL
     Indication: Drug abuse
     Route: 065

REACTIONS (1)
  - Drug abuse [Unknown]
